FAERS Safety Report 5123054-6 (Version None)
Quarter: 2006Q4

REPORT INFORMATION
  Report Type: 
  Country: None (occurrence: None)
  Receive Date: 20061004
  Receipt Date: 20061004
  Transmission Date: 20070319
  Serious: Yes (Other)
  Sender: FDA-Public Use
  Company Number: None

PATIENT
  Age: 25 Year
  Sex: Male

DRUGS (1)
  1. DEBROX   UREA HYDROGEN PEROXIDE DROP(S) (UREA HYDROGE PEROXIDE) [Suspect]
     Indication: CERUMEN REMOVAL
     Dosage: UNK/SINGLE DOSE/AURAL   OTIC
     Route: 001
     Dates: start: 20060918, end: 20060918

REACTIONS (12)
  - APPLICATION SITE PAIN [None]
  - DIZZINESS [None]
  - DYSGEUSIA [None]
  - DYSPNOEA [None]
  - EAR DISCOMFORT [None]
  - EAR PAIN [None]
  - FALL [None]
  - LOSS OF CONSCIOUSNESS [None]
  - SALIVARY HYPERSECRETION [None]
  - SYNCOPE [None]
  - THROAT TIGHTNESS [None]
  - TINNITUS [None]
